FAERS Safety Report 5720487-1 (Version None)
Quarter: 2008Q2

REPORT INFORMATION
  Report Type: 
  Country: None (occurrence: None)
  Receive Date: 20080423
  Receipt Date: 20070523
  Transmission Date: 20081010
  Serious: Yes (Hospitalization, Other)
  Sender: FDA-Public Use
  Company Number: 239726

PATIENT
  Age: 72 Year

DRUGS (3)
  1. AVASTIN [Suspect]
     Indication: COLON CANCER METASTATIC
     Dosage: 5 MG/KG, Q2W
  2. FLUOROURACIL [Concomitant]
  3. OXALIPLATIN [Concomitant]

REACTIONS (1)
  - NEPHROTIC SYNDROME [None]
